FAERS Safety Report 7281651-6 (Version None)
Quarter: 2011Q1

REPORT INFORMATION
  Report Type: 
  Country: None (occurrence: None)
  Receive Date: 20110208
  Receipt Date: 20110126
  Transmission Date: 20110831
  Serious: Yes (Other)
  Sender: FDA-Public Use
  Company Number: DE-ELI_LILLY_AND_COMPANY-DE201011004310

PATIENT
  Age: 57 Year
  Sex: Female
  Weight: 80 kg

DRUGS (7)
  1. PARACETAMOL [Concomitant]
     Indication: HEADACHE
     Dosage: UNK, AS NEEDED
  2. CYMBALTA [Suspect]
     Indication: DEPRESSION
     Dosage: 60 MG, UNKNOWN
     Route: 048
     Dates: start: 20080301
  3. ARIPIPRAZOLE [Concomitant]
     Dosage: 2.5 MG, UNKNOWN
     Dates: start: 20090701, end: 20090701
  4. CYMBALTA [Suspect]
     Dosage: 120 MG, UNKNOWN
     Route: 048
     Dates: end: 20091001
  5. QUETIAPINE [Concomitant]
     Dosage: 12.5 MG, UNK
     Dates: start: 20081127
  6. CYMBALTA [Suspect]
     Dosage: 90 MG, UNKNOWN
     Route: 048
  7. ZOPICLON [Concomitant]
     Indication: SLEEP DISORDER
     Dosage: 7.5 MG, UNKNOWN

REACTIONS (2)
  - SCAR [None]
  - ECZEMA [None]
